FAERS Safety Report 6844463-0 (Version None)
Quarter: 2010Q2

REPORT INFORMATION
  Report Type: 
  Country: None (occurrence: None)
  Receive Date: 20100629
  Receipt Date: 20100519
  Transmission Date: 20101027
  Serious: No
  Sender: FDA-Public Use
  Company Number: US-WYE-H15222910

PATIENT
  Sex: Female

DRUGS (2)
  1. PRISTIQ [Suspect]
     Dates: start: 20100401
  2. ENICAR HCT (OLMESARTAN MEDOXOMIL/HYDROCHLOROTHIAZIDE, ) [Suspect]
     Dates: start: 20100401

REACTIONS (1)
  - BLOOD PRESSURE INCREASED [None]
